FAERS Safety Report 7817186-9 (Version None)
Quarter: 2011Q4

REPORT INFORMATION
  Report Type: 
  Country: None (occurrence: None)
  Receive Date: 20111017
  Receipt Date: 20111017
  Transmission Date: 20120403
  Serious: Yes (Other)
  Sender: FDA-Public Use
  Company Number: None

PATIENT
  Age: 34 Year
  Sex: Female
  Weight: 76.203 kg

DRUGS (2)
  1. AVELOX [Suspect]
     Indication: CHRONIC SINUSITIS
     Dosage: ONE TABLET
     Route: 048
     Dates: start: 20111012, end: 20111014
  2. FLONASE [Concomitant]

REACTIONS (8)
  - MUSCULOSKELETAL STIFFNESS [None]
  - CONVULSION [None]
  - MUSCULOSKELETAL PAIN [None]
  - PAIN IN EXTREMITY [None]
  - TREMOR [None]
  - ARTHRALGIA [None]
  - JOINT STIFFNESS [None]
  - NECK PAIN [None]
